FAERS Safety Report 14095124 (Version 3)
Quarter: 2017Q4

REPORT INFORMATION
  Report Type: Report from Study
  Country: None (occurrence: IL)
  Receive Date: 20171016
  Receipt Date: 20171030
  Transmission Date: 20180321
  Serious: Yes (Hospitalization, Disabling)
  Sender: FDA-Public Use
  Company Number: IL-ABBVIE-17K-082-2041219-00

PATIENT
  Age: 27 Year
  Sex: Female
  Weight: 77 kg

DRUGS (8)
  1. HUMIRA [Suspect]
     Active Substance: ADALIMUMAB
     Route: 058
     Dates: start: 20170521
  2. HUMIRA [Suspect]
     Active Substance: ADALIMUMAB
     Indication: HIDRADENITIS
     Route: 058
     Dates: start: 20170409, end: 201704
  3. PREDNISONE. [Concomitant]
     Active Substance: PREDNISONE
     Indication: HIDRADENITIS
     Dates: start: 201710
  4. SEPTAL SCRUB [Concomitant]
     Indication: HIDRADENITIS
     Route: 061
     Dates: start: 201706
  5. HUMIRA [Suspect]
     Active Substance: ADALIMUMAB
     Dosage: SINGLE DOSE
     Route: 058
     Dates: start: 20170423, end: 20170423
  6. OPTALGIN [Concomitant]
     Active Substance: METAMIZOLE
     Indication: HIDRADENITIS
     Dosage: PRN
     Route: 048
     Dates: start: 201706
  7. HUMIRA [Suspect]
     Active Substance: ADALIMUMAB
     Dosage: SINGLE DOSE
     Route: 058
     Dates: start: 20170507, end: 20170507
  8. FLAMINAL+POLYMEN [Concomitant]
     Indication: HIDRADENITIS
     Route: 061
     Dates: start: 201708

REACTIONS (3)
  - Intentional product misuse [Recovered/Resolved]
  - Hidradenitis [Recovering/Resolving]
  - Hidradenitis [Not Recovered/Not Resolved]

NARRATIVE: CASE EVENT DATE: 2017
